FAERS Safety Report 7542505-0 (Version None)
Quarter: 2011Q2

REPORT INFORMATION
  Report Type: 
  Country: None (occurrence: None)
  Receive Date: 20110613
  Receipt Date: 20110607
  Transmission Date: 20111010
  Serious: Yes (Life-Threatening)
  Sender: FDA-Public Use
  Company Number: JP-ELI_LILLY_AND_COMPANY-JP201012004911

PATIENT
  Sex: Female
  Weight: 37 kg

DRUGS (19)
  1. ALFAROL [Concomitant]
     Indication: OSTEOPOROSIS
     Dosage: 0.5 UG, UNK
     Route: 048
  2. GASMOTIN [Concomitant]
     Indication: PROPHYLAXIS
     Dosage: 15 MG, UNK
     Route: 048
  3. DAIKENTYUTO [Concomitant]
     Indication: PROPHYLAXIS
     Dosage: 7.5 G, UNK
     Route: 048
  4. RABEPRAZOLE SODIUM [Concomitant]
     Indication: REFLUX OESOPHAGITIS
     Dosage: 20 MG, UNK
     Route: 048
  5. GLUCONSAN K [Concomitant]
     Indication: PROPHYLAXIS
     Dosage: 8 MEQ, UNK
     Route: 048
  6. ACTONEL [Concomitant]
     Indication: OSTEOPOROSIS
     Dosage: 17.5 MG, UNK
     Route: 048
  7. LAC B [Concomitant]
     Indication: PROPHYLAXIS
     Dosage: 3 G, UNK
     Route: 048
  8. INCREMIN [Concomitant]
     Indication: PROPHYLAXIS
     Dosage: 10 UNK, UNK
     Route: 048
     Dates: end: 20101201
  9. MAGNESIUM SULFATE [Concomitant]
     Indication: PROPHYLAXIS
     Dosage: 990 MG, UNK
     Route: 048
     Dates: start: 20101209
  10. ANPLAG [Concomitant]
     Indication: SKIN ULCER
     Dosage: 300 MG, UNK
     Route: 048
     Dates: end: 20101201
  11. WARFARIN SODIUM [Concomitant]
     Indication: SKIN ULCER
     Dosage: 3 MG, UNK
     Route: 048
     Dates: end: 20101202
  12. DORNER [Concomitant]
     Indication: SKIN ULCER
     Dosage: 120 UG, UNK
     Route: 048
     Dates: end: 20101202
  13. PLETAL [Concomitant]
     Indication: SKIN ULCER
     Dosage: 200 MG, UNK
     Route: 048
     Dates: end: 20101202
  14. LOXOPROFEN [Concomitant]
     Indication: PROPHYLAXIS
     Dosage: 60 MG, UNK
     Route: 048
     Dates: start: 20101117
  15. VANCOMYCIN [Concomitant]
     Indication: SKIN ULCER
     Dosage: 2 G, DAILY (1/D)
     Route: 042
     Dates: start: 20101119, end: 20101130
  16. TADALAFIL [Suspect]
     Indication: PULMONARY ARTERIAL HYPERTENSION
     Dosage: 20 MG, DAILY (1/D)
     Route: 048
     Dates: start: 20101027, end: 20101202
  17. PREDNISOLONE [Concomitant]
     Indication: SCLERODERMA
     Dosage: 5 MG, UNK
     Route: 048
  18. CEFAMEZIN ALPHA [Concomitant]
     Indication: PROPHYLAXIS
     Dosage: 2 G, UNK
     Route: 042
     Dates: start: 20101117, end: 20110419
  19. LIPLE [Concomitant]
     Indication: SKIN ULCER
     Dosage: 10 UG, UNK
     Route: 042
     Dates: end: 20101202

REACTIONS (1)
  - PLATELET COUNT DECREASED [None]
